FAERS Safety Report 5484187-8 (Version None)
Quarter: 2007Q4

REPORT INFORMATION
  Report Type: 
  Country: None (occurrence: None)
  Receive Date: 20071009
  Receipt Date: 20071009
  Transmission Date: 20080405
  Serious: No
  Sender: FDA-Public Use
  Company Number: None

PATIENT
  Sex: Male
  Weight: 87.9978 kg

DRUGS (1)
  1. OXYCONTIN [Suspect]
     Indication: NON-HODGKIN'S LYMPHOMA
     Dosage: 20 MG 1 PO Q 8 HRS PO 40 MG 1 PO Q 8 HRS PO 80 MG 1 PO Q 8 HRS PO
     Route: 048
     Dates: start: 20070901

REACTIONS (4)
  - ABDOMINAL PAIN [None]
  - NAUSEA [None]
  - THERAPEUTIC RESPONSE UNEXPECTED WITH DRUG SUBSTITUTION [None]
  - VOMITING [None]
